FAERS Safety Report 21507874 (Version 1)
Quarter: 2022Q4

REPORT INFORMATION
  Report Type: Spontaneous
  Country: KR (occurrence: KR)
  Receive Date: 20221026
  Receipt Date: 20221026
  Transmission Date: 20230112
  Serious: Yes (Hospitalization, Other)
  Sender: FDA-Public Use
  Company Number: KR-ELI_LILLY_AND_COMPANY-KR202210010382

PATIENT
  Age: 59 Year
  Sex: Female

DRUGS (7)
  1. ZYPREXA [Suspect]
     Active Substance: OLANZAPINE
     Indication: Product used for unknown indication
     Dosage: 1 DOSAGE FORM, DAILY
     Route: 065
     Dates: start: 20210727, end: 20210729
  2. ZYPREXA [Suspect]
     Active Substance: OLANZAPINE
     Dosage: 1 DOSAGE FORM, DAILY
     Route: 065
     Dates: start: 20210804, end: 20210809
  3. ZYPREXA [Suspect]
     Active Substance: OLANZAPINE
     Dosage: 1 DOSAGE FORM, DAILY
     Route: 065
     Dates: start: 20210812, end: 20210812
  4. ZYPREXA [Suspect]
     Active Substance: OLANZAPINE
     Indication: Product used for unknown indication
     Dosage: 1 DOSAGE FORM, DAILY
     Route: 065
     Dates: start: 20210727, end: 20210729
  5. ZYPREXA [Suspect]
     Active Substance: OLANZAPINE
     Dosage: 1 DOSAGE FORM, DAILY
     Route: 065
     Dates: start: 20210804, end: 20210809
  6. ZYPREXA [Suspect]
     Active Substance: OLANZAPINE
     Dosage: 1 DOSAGE FORM, DAILY
     Route: 065
     Dates: start: 20210812, end: 20210812
  7. LAMOTRIGINE [Concomitant]
     Active Substance: LAMOTRIGINE
     Indication: Product used for unknown indication

REACTIONS (1)
  - Stevens-Johnson syndrome [Unknown]
